FAERS Safety Report 17656906 (Version 1)
Quarter: 2020Q2

REPORT INFORMATION
  Report Type: Other
  Country: JP (occurrence: JP)
  Receive Date: 20200410
  Receipt Date: 20200410
  Transmission Date: 20200713
  Serious: Yes (Life-Threatening)
  Sender: FDA-Public Use
  Company Number: JP-DEXPHARM-20200312

PATIENT
  Age: 41 Year
  Sex: Female

DRUGS (11)
  1. CICLOSPORIN [Suspect]
     Active Substance: CYCLOSPORINE
  2. DEXAMETHASONE. [Suspect]
     Active Substance: DEXAMETHASONE
     Dosage: DAILY DOSE: 20 MG MILLGRAM(S) EVERY WEEKS
  3. ELOTUZUMAB. [Suspect]
     Active Substance: ELOTUZUMAB
  4. CISPLATIN. [Suspect]
     Active Substance: CISPLATIN
  5. ETOPSIDE [Suspect]
     Active Substance: ETOPOSIDE
  6. TACROLIMUS. [Suspect]
     Active Substance: TACROLIMUS
  7. CARFILZOMIB [Suspect]
     Active Substance: CARFILZOMIB
  8. CYCLOPHOSPHAMIDE. [Suspect]
     Active Substance: CYCLOPHOSPHAMIDE
  9. LENALIDOMIDE [Suspect]
     Active Substance: LENALIDOMIDE
  10. BORTEZOMIB. [Suspect]
     Active Substance: BORTEZOMIB
  11. DEXAMETHASONE. [Suspect]
     Active Substance: DEXAMETHASONE
     Dosage: DAILY DOSE: 8 MG MILLGRAM(S) EVERY WEEKS

REACTIONS (3)
  - Drug interaction [Unknown]
  - Acute graft versus host disease in skin [Recovering/Resolving]
  - Chronic graft versus host disease [Recovering/Resolving]
